FAERS Safety Report 19007193 (Version 1)
Quarter: 2021Q1

REPORT INFORMATION
  Report Type: Spontaneous
  Country: US (occurrence: US)
  Receive Date: 20210312
  Receipt Date: 20210312
  Transmission Date: 20210420
  Serious: Yes (Other)
  Sender: FDA-Public Use
  Company Number: None

PATIENT
  Age: 60 Year
  Sex: Female

DRUGS (20)
  1. BUMETANIDE. [Concomitant]
     Active Substance: BUMETANIDE
  2. ATORVASTATIN [Concomitant]
     Active Substance: ATORVASTATIN
  3. LOSARTAN. [Concomitant]
     Active Substance: LOSARTAN
  4. TYVASO [Concomitant]
     Active Substance: TREPROSTINIL
  5. SILDENAFIL. [Concomitant]
     Active Substance: SILDENAFIL
  6. TRAMADOL. [Concomitant]
     Active Substance: TRAMADOL
  7. GABAPENTIN. [Concomitant]
     Active Substance: GABAPENTIN
  8. MELATONIN [Concomitant]
     Active Substance: MELATONIN
  9. COLACE [Concomitant]
     Active Substance: DOCUSATE SODIUM
  10. KWIKPEN [Concomitant]
  11. OPSUMIT [Suspect]
     Active Substance: MACITENTAN
     Indication: PULMONARY HYPERTENSION
     Route: 048
     Dates: start: 20190228
  12. SPIRONOLACTONE. [Concomitant]
     Active Substance: SPIRONOLACTONE
  13. SENNA LAXATIVE [Concomitant]
     Active Substance: SENNOSIDES
  14. CYCLOBENZAPRINE. [Concomitant]
     Active Substance: CYCLOBENZAPRINE
  15. CHANTIX [Concomitant]
     Active Substance: VARENICLINE TARTRATE
  16. HUMULIN 70/30 [Concomitant]
     Active Substance: INSULIN HUMAN
  17. ASPIRIN. [Concomitant]
     Active Substance: ASPIRIN
  18. OXYCODONE [Concomitant]
     Active Substance: OXYCODONE
  19. NALOXONE NASAL SPRAY [Concomitant]
  20. ALBUTERNOL HFA [Concomitant]

REACTIONS (4)
  - Pneumonia [None]
  - Dyspnoea exertional [None]
  - Back pain [None]
  - Arthralgia [None]

NARRATIVE: CASE EVENT DATE: 20210211
